FAERS Safety Report 6730632-7 (Version None)
Quarter: 2010Q2

REPORT INFORMATION
  Report Type: 
  Country: None (occurrence: None)
  Receive Date: 20100518
  Receipt Date: 20100507
  Transmission Date: 20101027
  Serious: Yes (Other)
  Sender: FDA-Public Use
  Company Number: US-BAXTER-2010BH011644

PATIENT
  Age: 49 Year
  Sex: Female

DRUGS (2)
  1. DIANEAL [Suspect]
     Indication: PERITONEAL DIALYSIS
     Route: 033
  2. DIANEAL [Suspect]
     Indication: PERITONEAL DIALYSIS
     Route: 033

REACTIONS (6)
  - ABDOMINAL DISTENSION [None]
  - ADVERSE EVENT [None]
  - GASTROINTESTINAL HAEMORRHAGE [None]
  - PAIN [None]
  - RETROPERITONEAL HAEMORRHAGE [None]
  - VOMITING [None]
